FAERS Safety Report 25334560 (Version 1)
Quarter: 2025Q2

REPORT INFORMATION
  Report Type: Spontaneous
  Country: IL (occurrence: IL)
  Receive Date: 20250520
  Receipt Date: 20250520
  Transmission Date: 20250717
  Serious: Yes (Death, Other)
  Sender: BIOVITRUM
  Company Number: IL-BIOVITRUM-2025-IL-006976

PATIENT
  Sex: Male

DRUGS (1)
  1. VONJO [Suspect]
     Active Substance: PACRITINIB
     Indication: Product used for unknown indication

REACTIONS (1)
  - Sepsis [Fatal]
